FAERS Safety Report 17120124 (Version 1)
Quarter: 2019Q4

REPORT INFORMATION
  Report Type: Spontaneous
  Country: CN (occurrence: CN)
  Receive Date: 20191206
  Receipt Date: 20191206
  Transmission Date: 20200122
  Serious: Yes (Other)
  Sender: FDA-Public Use
  Company Number: NVSC2019CN057326

PATIENT

DRUGS (1)
  1. LESCOL [Suspect]
     Active Substance: FLUVASTATIN SODIUM
     Indication: RENAL FAILURE
     Dosage: UNK
     Route: 065

REACTIONS (2)
  - Renal impairment [Unknown]
  - Product use in unapproved indication [Unknown]
